FAERS Safety Report 5345791-0 (Version None)
Quarter: 2007Q2

REPORT INFORMATION
  Report Type: 
  Country: None (occurrence: None)
  Receive Date: 20070605
  Receipt Date: 20070529
  Transmission Date: 20071010
  Serious: Yes (Other)
  Sender: FDA-Public Use
  Company Number: HQWYE435531MAY07

PATIENT
  Age: 52 Year
  Sex: Male
  Weight: 83.99 kg

DRUGS (2)
  1. ADVIL [Suspect]
     Indication: CHEST PAIN
     Dosage: 2 TABLETS AS NEEDED
     Route: 048
     Dates: end: 20070131
  2. MICARDIS HCT [Concomitant]
     Indication: HYPERTENSION
     Dosage: UNKNOWN
     Route: 048

REACTIONS (1)
  - MYOCARDIAL INFARCTION [None]
